FAERS Safety Report 6993109-X (Version None)
Quarter: 2010Q3

REPORT INFORMATION
  Report Type: 
  Country: None (occurrence: None)
  Receive Date: 20100917
  Receipt Date: 20100416
  Transmission Date: 20110219
  Serious: No
  Sender: FDA-Public Use
  Company Number: US-ASTRAZENECA-2010SE16939

PATIENT
  Age: 34 Year
  Sex: Female
  Weight: 74.8 kg

DRUGS (10)
  1. SEROQUEL [Suspect]
     Indication: BIPOLAR DISORDER
     Route: 048
     Dates: start: 20080319, end: 20100412
  2. SEROQUEL [Suspect]
     Indication: ANXIETY
     Route: 048
     Dates: start: 20080319, end: 20100412
  3. SEROQUEL [Suspect]
     Indication: ATTENTION DEFICIT/HYPERACTIVITY DISORDER
     Route: 048
     Dates: start: 20080319, end: 20100412
  4. SEROQUEL [Suspect]
     Dosage: 50 MG IN THE AFTERNOON
     Route: 048
     Dates: start: 20080319, end: 20100412
  5. SEROQUEL [Suspect]
     Dosage: 50 MG IN THE AFTERNOON
     Route: 048
     Dates: start: 20080319, end: 20100412
  6. SEROQUEL [Suspect]
     Dosage: 50 MG IN THE AFTERNOON
     Route: 048
     Dates: start: 20080319, end: 20100412
  7. SEROQUEL [Suspect]
     Route: 048
     Dates: start: 20080319, end: 20100412
  8. SEROQUEL [Suspect]
     Route: 048
     Dates: start: 20080319, end: 20100412
  9. SEROQUEL [Suspect]
     Route: 048
     Dates: start: 20080319, end: 20100412
  10. XANAX [Concomitant]

REACTIONS (3)
  - DRUG DOSE OMISSION [None]
  - INSOMNIA [None]
  - LOGORRHOEA [None]
